FAERS Safety Report 10510960 (Version 3)
Quarter: 2014Q4

REPORT INFORMATION
  Report Type: Report from Study
  Country: US (occurrence: US)
  Receive Date: 20141010
  Receipt Date: 20141021
  Transmission Date: 20150528
  Serious: Yes (Death, Other)
  Sender: FDA-Public Use
  Company Number: US-GLAXOSMITHKLINE-B0969245A

PATIENT
  Age: 16 Year
  Sex: Male
  Weight: 72 kg

DRUGS (2)
  1. ZANAMIVIR [Suspect]
     Active Substance: ZANAMIVIR
     Indication: H1N1 INFLUENZA
     Dosage: 600 MG, UNK
     Route: 042
     Dates: start: 20140110
  2. ZANAMIVIR [Suspect]
     Active Substance: ZANAMIVIR
     Dosage: 250 MG, BID
     Route: 042
     Dates: end: 20140114

REACTIONS (5)
  - Multi-organ failure [Fatal]
  - Renal failure [Fatal]
  - Respiratory failure [Fatal]
  - Cerebrovascular accident [Fatal]
  - Septic shock [Fatal]

NARRATIVE: CASE EVENT DATE: 20140107
